FAERS Safety Report 22634314 (Version 1)
Quarter: 2023Q2

REPORT INFORMATION
  Report Type: Spontaneous
  Country: US (occurrence: None)
  Receive Date: 20230622
  Receipt Date: 20230622
  Transmission Date: 20230722
  Serious: No
  Sender: FDA-Public Use
  Company Number: None

PATIENT
  Sex: 0

DRUGS (3)
  1. GABAPENTIN [Suspect]
     Active Substance: GABAPENTIN
  2. PENICILLIN [Suspect]
     Active Substance: PENICILLIN
  3. MORPHINE [Suspect]
     Active Substance: MORPHINE

REACTIONS (3)
  - Mental status changes [None]
  - Oral mucosal eruption [None]
  - Urinary tract infection [None]
